FAERS Safety Report 8152015-8 (Version None)
Quarter: 2012Q1

REPORT INFORMATION
  Report Type: 
  Country: None (occurrence: None)
  Receive Date: 20120214
  Receipt Date: 20120122
  Transmission Date: 20120608
  Serious: Yes (Other)
  Sender: FDA-Public Use
  Company Number: JPI-P-016060

PATIENT
  Age: 53 Year
  Sex: Male
  Weight: 75 kg

DRUGS (5)
  1. CYAMEMAZINE [Concomitant]
  2. XYREM [Suspect]
     Indication: CATAPLEXY
     Dosage: 5; 5.5 GM (2.5; 2.75 GM, 2 IN 1 D), ORAL
     Route: 048
     Dates: start: 20110408, end: 20111116
  3. XYREM [Suspect]
     Indication: CATAPLEXY
     Dosage: 5; 5.5 GM (2.5; 2.75 GM, 2 IN 1 D), ORAL
     Route: 048
     Dates: start: 20111117
  4. VERAPAMIL/TRANDOLAPRIL [Concomitant]
  5. TRIMIPRAMINE MALEATE [Concomitant]

REACTIONS (4)
  - HYPERHIDROSIS [None]
  - TRANSIENT ISCHAEMIC ATTACK [None]
  - MIDDLE INSOMNIA [None]
  - VISUAL IMPAIRMENT [None]
